FAERS Safety Report 8623133-2 (Version None)
Quarter: 2012Q3

REPORT INFORMATION
  Report Type: 
  Country: None (occurrence: None)
  Receive Date: 20120827
  Receipt Date: 20120820
  Transmission Date: 20120928
  Serious: Yes (Other)
  Sender: FDA-Public Use
  Company Number: US-AMGEN-USASP2011024725

PATIENT
  Age: 47 Year
  Sex: Female
  Weight: 92.971 kg

DRUGS (22)
  1. ENBREL [Suspect]
     Indication: PSORIATIC ARTHROPATHY
     Dosage: UNK
     Dates: start: 20080501, end: 20101101
  2. CELEBREX [Concomitant]
     Dosage: 200 MG, BID
     Route: 048
     Dates: start: 20110107
  3. CLOBEX                             /00012002/ [Concomitant]
     Dosage: 0.05 %, UNK
     Dates: start: 20110428
  4. ENBREL [Suspect]
     Dosage: 50 MG, QWK
     Dates: start: 20080201, end: 20110101
  5. METHOTREXATE [Concomitant]
     Indication: PAIN IN EXTREMITY
     Dosage: 20 MG, QWK
     Dates: start: 20080301
  6. CLOBETASOL PROPIONATE [Concomitant]
     Dosage: 0.05 %, BID
     Dates: start: 20110428
  7. DETROL LA [Concomitant]
     Dosage: 4 MG, QD
     Route: 048
     Dates: start: 20120116
  8. CLARITIN                           /00413701/ [Concomitant]
     Dosage: 10 MG, QD
     Route: 048
     Dates: start: 20120118
  9. CYMBALTA [Concomitant]
     Indication: FIBROMYALGIA
     Dosage: 60 MG, QD
     Route: 048
     Dates: start: 20120611
  10. ARAVA [Concomitant]
     Dosage: 20 MG, QD
     Route: 048
     Dates: start: 20120815
  11. ZOLPIDEM TARTRATE [Concomitant]
     Dosage: 10 MG, PRN
     Route: 048
     Dates: start: 20120612
  12. VITAMIN D [Concomitant]
     Dosage: 50000 IU, Q2WK
     Route: 048
     Dates: start: 20110107
  13. METHOTREXATE [Concomitant]
     Indication: OEDEMA PERIPHERAL
     Dosage: 15 MG, QWK
     Dates: start: 20080101, end: 20101101
  14. LYRICA [Concomitant]
     Indication: FIBROMYALGIA
     Dosage: 100 MG, TID
     Route: 048
     Dates: start: 20120504
  15. CALCIUM + VITAMIN D                /01483701/ [Concomitant]
     Dosage: UNK
  16. PREDNISONE TAB [Concomitant]
     Dosage: 5 MG, UNK
     Route: 048
     Dates: start: 20120612
  17. TRAMADOL HCL [Concomitant]
     Dosage: 100 MG, Q12H
     Route: 048
     Dates: start: 20120120
  18. MULTIVITAMIN                       /07504101/ [Concomitant]
     Dosage: UNK UNK, QD
     Dates: start: 20110314
  19. PREDNISONE TAB [Concomitant]
     Dosage: 10 MG, QD
  20. CYANOCOBALAMIN [Concomitant]
     Dosage: 2500 MUG, UNK
     Route: 060
     Dates: start: 20110909
  21. FOLIC ACID [Concomitant]
     Dosage: UNK UNK, QD
     Dates: start: 20110107
  22. BACLOFEN [Concomitant]
     Dosage: 10 MG, TID
     Route: 048

REACTIONS (49)
  - AMNESIA [None]
  - GAIT DISTURBANCE [None]
  - FOOT FRACTURE [None]
  - HYPERTONIC BLADDER [None]
  - VERTIGO [None]
  - TONGUE INJURY [None]
  - SPEECH DISORDER [None]
  - HYPOAESTHESIA [None]
  - OEDEMA [None]
  - IRRITABLE BOWEL SYNDROME [None]
  - RED BLOOD CELL SEDIMENTATION RATE INCREASED [None]
  - ARTHRITIS [None]
  - DIARRHOEA [None]
  - PSORIATIC ARTHROPATHY [None]
  - HYPONATRAEMIA [None]
  - MYALGIA [None]
  - INTERVERTEBRAL DISC PROTRUSION [None]
  - DEMYELINATION [None]
  - NECK PAIN [None]
  - DEPRESSION [None]
  - DYSURIA [None]
  - ORAL CANDIDIASIS [None]
  - MULTIPLE SCLEROSIS [None]
  - ABDOMINAL DISTENSION [None]
  - GASTROOESOPHAGEAL REFLUX DISEASE [None]
  - MUSCULOSKELETAL STIFFNESS [None]
  - RASH [None]
  - PSORIASIS [None]
  - GINGIVAL DISORDER [None]
  - BURNING SENSATION [None]
  - BURSITIS [None]
  - OBESITY SURGERY [None]
  - MENTAL DISORDER [None]
  - ALTERED STATE OF CONSCIOUSNESS [None]
  - CONVULSION [None]
  - MUSCULAR WEAKNESS [None]
  - INSOMNIA [None]
  - DENTAL DISCOMFORT [None]
  - DIZZINESS [None]
  - ALOPECIA [None]
  - ORAL PAIN [None]
  - DRY MOUTH [None]
  - ARTHRALGIA [None]
  - MIGRAINE [None]
  - BACK DISORDER [None]
  - SALIVA ALTERED [None]
  - CHEILITIS [None]
  - OPTIC NEURITIS [None]
  - DRUG HYPERSENSITIVITY [None]
